FAERS Safety Report 8775512 (Version 3)
Quarter: 2013Q1

REPORT INFORMATION
  Report Type: Report from Study
  Country: JP (occurrence: JP)
  Receive Date: 20120909
  Receipt Date: 20130108
  Transmission Date: 20140127
  Serious: Yes (Other)
  Sender: FDA-Public Use
  Company Number: JP-009507513-1208JPN010773

PATIENT
  Age: 64 Year
  Sex: Male
  Weight: 66 kg

DRUGS (17)
  1. PEGINTRON [Suspect]
     Indication: CHRONIC HEPATITIS C
     Dosage: 1.5 MICROGRAM PER KILOGRAM, QW
     Route: 058
     Dates: start: 20120508, end: 20121023
  2. REBETOL [Suspect]
     Indication: CHRONIC HEPATITIS C
     Dosage: 800 MG, QD
     Route: 048
     Dates: start: 20120508, end: 20120730
  3. REBETOL [Suspect]
     Dosage: 400 MG, QD
     Route: 048
     Dates: start: 20120731, end: 20121023
  4. TELAVIC [Suspect]
     Indication: CHRONIC HEPATITIS C
     Dosage: 2250 MG, QD
     Route: 048
     Dates: start: 20120508, end: 20120731
  5. PROMAC (POLAPREZINC) [Concomitant]
     Indication: GASTRIC ULCER
     Dosage: 225 MG, QD; FORMULATION: POR
     Route: 048
  6. URSO [Concomitant]
     Indication: CHRONIC HEPATITIS C
     Dosage: 600 MG, QD; FORMULATION: POR
     Route: 048
  7. EPADEL S [Concomitant]
     Indication: PERIPHERAL ARTERIAL OCCLUSIVE DISEASE
     Dosage: 3 DF, QD
     Route: 048
  8. NEXIUM [Concomitant]
     Indication: PROPHYLAXIS
     Dosage: 20 MG, QD
     Route: 048
     Dates: start: 20120508, end: 20121023
  9. VOLTAREN [Concomitant]
     Indication: PROPHYLAXIS
     Dosage: 25 MG, QD AS NEEDED
     Route: 054
     Dates: start: 20120508, end: 20121023
  10. HIRUDOID [Concomitant]
     Indication: DRY SKIN PROPHYLAXIS
     Dosage: DAILY DOSE UNKNOWN, QD
     Route: 061
     Dates: start: 20120512, end: 20120512
  11. LIDOMEX [Concomitant]
     Dosage: PROPER QUANITY, QD
     Route: 061
     Dates: start: 20120611, end: 20120611
  12. DERMOVATE [Concomitant]
     Dosage: PROPER QUANTITY, QD
     Route: 061
     Dates: start: 20120621, end: 20120621
  13. LIVACT [Concomitant]
     Indication: CHRONIC HEPATITIS C
     Dosage: 3 DF, QD
     Route: 048
  14. TALION (BEPOTASTINE BESYLATE) [Concomitant]
     Indication: PROPHYLAXIS
     Dosage: 20 MG, QD
     Route: 048
     Dates: start: 20120508, end: 20121023
  15. AZUNOL (GUAIAZULENE) [Concomitant]
     Indication: PROPHYLAXIS
     Dosage: PROPER QUANTITY, QD
     Route: 061
     Dates: end: 20121023
  16. BIO-THREE [Concomitant]
     Dosage: 6 DF, QD
     Route: 048
  17. ALMETA [Concomitant]
     Indication: PROPHYLAXIS
     Dosage: UNK, QD
     Route: 061
     Dates: end: 20121023

REACTIONS (1)
  - Rash [Recovering/Resolving]
